FAERS Safety Report 17305552 (Version 1)
Quarter: 2020Q1

REPORT INFORMATION
  Report Type: Spontaneous
  Country: IT (occurrence: IT)
  Receive Date: 20200123
  Receipt Date: 20200123
  Transmission Date: 20200409
  Serious: Yes (Other)
  Sender: FDA-Public Use
  Company Number: IT-MYLANLABS-2020M1006460

PATIENT
  Age: 12 Month
  Sex: Male

DRUGS (5)
  1. TOPOTECAN [Suspect]
     Active Substance: TOPOTECAN HYDROCHLORIDE
     Dosage: UNK UNK, Q3W 0.3-2 MG, Q3W
     Route: 013
  2. CARBOPLATIN. [Suspect]
     Active Substance: CARBOPLATIN
     Indication: RETINOBLASTOMA
     Dosage: 30 MG, Q3W
     Route: 013
  3. TOPOTECAN [Suspect]
     Active Substance: TOPOTECAN HYDROCHLORIDE
     Indication: RETINOBLASTOMA
     Dosage: UNK UNK, QW 1 INJECTION 1 WEEK AFTER IA
     Route: 031
  4. MELPHALAN. [Suspect]
     Active Substance: MELPHALAN
     Indication: RETINOBLASTOMA
     Dosage: 5 MG (2.5-5 MG), Q3W
     Route: 013
  5. MELPHALAN. [Suspect]
     Active Substance: MELPHALAN
     Dosage: 30 UG (10-30 UG), QW
     Route: 031

REACTIONS (2)
  - Chorioretinal atrophy [Unknown]
  - Product use in unapproved indication [Unknown]
